FAERS Safety Report 11644215 (Version 2)
Quarter: 2015Q4

REPORT INFORMATION
  Report Type: Spontaneous
  Country: US (occurrence: US)
  Receive Date: 20151020
  Receipt Date: 20151217
  Transmission Date: 20160304
  Serious: Yes (Hospitalization, Other)
  Sender: FDA-Public Use
  Company Number: US-GLAXOSMITHKLINE-US2015GSK148565

PATIENT
  Age: 47 Year
  Sex: Male
  Weight: 65.76 kg

DRUGS (2)
  1. WELLBUTRIN [Suspect]
     Active Substance: BUPROPION HYDROCHLORIDE
     Indication: PRODUCT USED FOR UNKNOWN INDICATION
     Dosage: UNK
     Dates: start: 20090918, end: 20090921
  2. CHANTIX [Suspect]
     Active Substance: VARENICLINE TARTRATE
     Indication: SMOKING CESSATION THERAPY
     Dosage: UNK
     Dates: start: 20100629

REACTIONS (17)
  - Homicidal ideation [Unknown]
  - Feeling abnormal [Unknown]
  - Sleep disorder [Unknown]
  - Depression [Unknown]
  - Anger [Unknown]
  - Suicidal behaviour [Unknown]
  - Suicide attempt [Unknown]
  - Hypersomnia [Recovered/Resolved]
  - Frustration [Unknown]
  - Adverse drug reaction [Unknown]
  - Bipolar disorder [Unknown]
  - Intentional overdose [Unknown]
  - Weight decreased [Recovering/Resolving]
  - Amnesia [Recovering/Resolving]
  - Paranoia [Unknown]
  - Ill-defined disorder [Unknown]
  - Malaise [Unknown]

NARRATIVE: CASE EVENT DATE: 201012
